FAERS Safety Report 23144269 (Version 1)
Quarter: 2023Q4

REPORT INFORMATION
  Report Type: Report from Study
  Country: US (occurrence: US)
  Receive Date: 20231103
  Receipt Date: 20231103
  Transmission Date: 20240109
  Serious: No
  Sender: FDA-Public Use
  Company Number: US-ALXN-A202213808

PATIENT
  Sex: Male

DRUGS (1)
  1. ULTOMIRIS [Suspect]
     Active Substance: RAVULIZUMAB-CWVZ
     Indication: Myasthenia gravis
     Dosage: UNK, EVERY 10 WEEKS
     Route: 065
     Dates: start: 20220725

REACTIONS (9)
  - Eyelid ptosis [Recovered/Resolved]
  - Herpes zoster [Not Recovered/Not Resolved]
  - Post herpetic neuralgia [Not Recovered/Not Resolved]
  - Back disorder [Unknown]
  - Musculoskeletal discomfort [Unknown]
  - Infusion site pain [Unknown]
  - Infusion site rash [Unknown]
  - Nasopharyngitis [Unknown]
  - Fatigue [Unknown]
